FAERS Safety Report 12172237 (Version 6)
Quarter: 2016Q3

REPORT INFORMATION
  Report Type: Report from Study
  Country: US (occurrence: US)
  Receive Date: 20160311
  Receipt Date: 20160707
  Transmission Date: 20161109
  Serious: Yes (Disabling, Other)
  Sender: FDA-Public Use
  Company Number: US-SA-2015SA028904

PATIENT
  Age: 40 Year
  Sex: Male

DRUGS (6)
  1. LEMTRADA [Suspect]
     Active Substance: ALEMTUZUMAB
     Indication: MULTIPLE SCLEROSIS RELAPSE
     Route: 041
     Dates: start: 20150302, end: 20150303
  2. LEMTRADA [Suspect]
     Active Substance: ALEMTUZUMAB
     Indication: MULTIPLE SCLEROSIS RELAPSE
     Route: 041
     Dates: start: 20160418, end: 20160418
  3. LEMTRADA [Suspect]
     Active Substance: ALEMTUZUMAB
     Indication: MULTIPLE SCLEROSIS RELAPSE
     Route: 041
     Dates: start: 20150225, end: 20150226
  4. LEMTRADA [Suspect]
     Active Substance: ALEMTUZUMAB
     Indication: MULTIPLE SCLEROSIS RELAPSE
     Route: 041
     Dates: start: 20160420, end: 20160420
  5. LEMTRADA [Suspect]
     Active Substance: ALEMTUZUMAB
     Indication: MULTIPLE SCLEROSIS RELAPSE
     Route: 041
     Dates: start: 20150223, end: 20150223
  6. LEMTRADA [Suspect]
     Active Substance: ALEMTUZUMAB
     Indication: MULTIPLE SCLEROSIS RELAPSE
     Route: 041
     Dates: start: 20160414, end: 20160414

REACTIONS (29)
  - Mobility decreased [Unknown]
  - Dry skin [Unknown]
  - Rash [Unknown]
  - Drug ineffective [Not Recovered/Not Resolved]
  - Asthenia [Not Recovered/Not Resolved]
  - Balance disorder [Unknown]
  - Malaise [Not Recovered/Not Resolved]
  - Unevaluable event [Recovering/Resolving]
  - Disorientation [Not Recovered/Not Resolved]
  - Dysphonia [Unknown]
  - Exfoliative rash [Unknown]
  - Pyrexia [Unknown]
  - Disability [Not Recovered/Not Resolved]
  - Dysstasia [Not Recovered/Not Resolved]
  - Muscular weakness [Unknown]
  - Osteonecrosis [Not Recovered/Not Resolved]
  - Condition aggravated [Unknown]
  - Gait disturbance [Unknown]
  - Psoriasis [Unknown]
  - Urticaria [Recovered/Resolved]
  - Chills [Unknown]
  - Condition aggravated [Not Recovered/Not Resolved]
  - Asthenia [Unknown]
  - Musculoskeletal pain [Unknown]
  - Musculoskeletal stiffness [Unknown]
  - Exercise tolerance decreased [Unknown]
  - Product use issue [Unknown]
  - Feeling abnormal [Unknown]
  - Peripheral coldness [Not Recovered/Not Resolved]

NARRATIVE: CASE EVENT DATE: 2015
